FAERS Safety Report 5624779-6 (Version None)
Quarter: 2008Q1

REPORT INFORMATION
  Report Type: 
  Country: None (occurrence: None)
  Receive Date: 20080208
  Receipt Date: 20080125
  Transmission Date: 20080703
  Serious: Yes (Death)
  Sender: FDA-Public Use
  Company Number: US022403

PATIENT
  Age: 40 Year
  Sex: Male

DRUGS (8)
  1. TIAGABINE HCL [Suspect]
     Dosage: ORAL
     Route: 048
  2. QUETIAPINE FUMARATE [Suspect]
     Dosage: ORAL
     Route: 048
  3. DIAZEPAM [Suspect]
     Dosage: ORAL
     Route: 048
  4. ALPRAZOLAM [Suspect]
     Dosage: ORAL
     Route: 048
  5. LAMOTRIGINE [Suspect]
     Dosage: ORAL
     Route: 048
  6. ZOLPIDEM [Suspect]
     Dosage: ORAL
     Route: 048
  7. IBUPROFEN [Suspect]
     Dosage: ORAL
     Route: 048
  8. LORATADINE [Suspect]
     Dosage: ORAL
     Route: 048

REACTIONS (1)
  - COMPLETED SUICIDE [None]
